FAERS Safety Report 7742975-9 (Version None)
Quarter: 2011Q3

REPORT INFORMATION
  Report Type: 
  Country: None (occurrence: None)
  Receive Date: 20110912
  Receipt Date: 20110831
  Transmission Date: 20111222
  Serious: Yes (Other)
  Sender: FDA-Public Use
  Company Number: JP-ROCHE-696807

PATIENT
  Sex: Male
  Weight: 63 kg

DRUGS (32)
  1. TOCILIZUMAB [Suspect]
     Route: 041
     Dates: start: 20081201, end: 20081201
  2. TOCILIZUMAB [Suspect]
     Route: 041
     Dates: start: 20090123, end: 20090123
  3. TOCILIZUMAB [Suspect]
     Route: 041
     Dates: start: 20090825, end: 20100802
  4. PREDNISOLONE [Concomitant]
     Dosage: DOSE FORM: PERORAL AGENT
     Route: 048
     Dates: start: 20080313, end: 20080915
  5. PREDNISOLONE [Concomitant]
     Route: 048
     Dates: start: 20080916
  6. KREMEZIN [Concomitant]
     Dosage: DOSE FORM: PERORAL AGENT
     Route: 048
     Dates: start: 20080313
  7. VOLTAREN [Concomitant]
     Dosage: DOSE FORM: SUPPOSITORIAE RECTALE
     Route: 054
  8. MAGMITT [Concomitant]
     Route: 048
     Dates: start: 20080313
  9. TOCILIZUMAB [Suspect]
     Route: 041
     Dates: start: 20110316, end: 20110316
  10. TOCILIZUMAB [Suspect]
     Indication: RHEUMATOID ARTHRITIS
     Route: 041
     Dates: start: 20080725, end: 20080725
  11. TOCILIZUMAB [Suspect]
     Route: 041
     Dates: start: 20090601, end: 20090601
  12. TOCILIZUMAB [Suspect]
     Route: 041
     Dates: start: 20110523
  13. TOCILIZUMAB [Suspect]
     Route: 041
     Dates: start: 20080826, end: 20080826
  14. TOCILIZUMAB [Suspect]
     Route: 041
     Dates: start: 20080916, end: 20080916
  15. TOCILIZUMAB [Suspect]
     Route: 041
  16. TOCILIZUMAB [Suspect]
     Route: 041
     Dates: start: 20090728, end: 20090728
  17. TOCILIZUMAB [Suspect]
     Route: 041
     Dates: start: 20110502, end: 20110502
  18. PREDNISOLONE [Concomitant]
     Route: 048
  19. LOXONIN [Concomitant]
     Dosage: DOSE FORM: PERORAL AGENT
     Route: 048
     Dates: start: 20080313
  20. FERROUS CITRATE [Concomitant]
     Dosage: DOSE FORM: PERORAL AGENT
     Route: 048
  21. TOCILIZUMAB [Suspect]
     Route: 041
     Dates: start: 20081010, end: 20081010
  22. TOCILIZUMAB [Suspect]
     Route: 041
     Dates: start: 20081104, end: 20081104
  23. METHYCOBAL [Concomitant]
     Dosage: DOSE FORM: PERORAL AGENT
     Route: 048
     Dates: start: 20080313
  24. COMELIAN [Concomitant]
     Dosage: DOSE FORM: PERORAL AGENT
     Route: 048
     Dates: start: 20080313
  25. TOCILIZUMAB [Suspect]
     Route: 041
     Dates: start: 20090408, end: 20090408
  26. TOCILIZUMAB [Suspect]
     Route: 041
     Dates: start: 20090508, end: 20090508
  27. LANSOPRAZOLE [Concomitant]
     Route: 048
  28. TOCILIZUMAB [Suspect]
     Route: 041
     Dates: start: 20100830, end: 20100830
  29. JUVELA N [Concomitant]
     Dosage: DOSE FORM: PERORAL AGENT
     Route: 048
  30. TOCILIZUMAB [Suspect]
     Route: 041
     Dates: start: 20081226, end: 20081226
  31. TOCILIZUMAB [Suspect]
     Route: 041
     Dates: start: 20100924, end: 20110216
  32. LOSARTAN POTASSIUM AND HYDROCHLOROTHIAZIDE [Concomitant]
     Route: 048
     Dates: start: 20080313

REACTIONS (3)
  - LYMPHOPENIA [None]
  - NEPHROGENIC ANAEMIA [None]
  - LAMINAPLASTY [None]
